FAERS Safety Report 18039961 (Version 6)
Quarter: 2025Q1

REPORT INFORMATION
  Report Type: Spontaneous
  Country: US (occurrence: US)
  Receive Date: 20200717
  Receipt Date: 20250305
  Transmission Date: 20250408
  Serious: Yes (Death, Hospitalization, Other)
  Sender: PURDUE
  Company Number: US-PURDUE-USA-2020-0152803

PATIENT
  Sex: Female
  Weight: 74.84 kg

DRUGS (9)
  1. OXYCONTIN [Suspect]
     Active Substance: OXYCODONE HYDROCHLORIDE
     Indication: Pain
     Dosage: 1 TABLET OF 80 MG, BID
     Route: 048
     Dates: start: 1996, end: 2006
  2. OXYCONTIN [Suspect]
     Active Substance: OXYCODONE HYDROCHLORIDE
     Indication: Back injury
     Route: 048
     Dates: start: 2001
  3. OXYCONTIN [Suspect]
     Active Substance: OXYCODONE HYDROCHLORIDE
     Route: 048
     Dates: end: 2016
  4. OXYCONTIN [Suspect]
     Active Substance: OXYCODONE HYDROCHLORIDE
     Route: 048
     Dates: end: 2016
  5. OXYCONTIN [Suspect]
     Active Substance: OXYCODONE HYDROCHLORIDE
     Route: 048
  6. OXYCONTIN [Suspect]
     Active Substance: OXYCODONE HYDROCHLORIDE
     Route: 048
     Dates: end: 2016
  7. OXYCODONE HYDROCHLORIDE [Suspect]
     Active Substance: OXYCODONE HYDROCHLORIDE
     Indication: Pain
     Dosage: 1 TABLET OF 100 MG, BID
     Route: 048
     Dates: start: 1999, end: 2016
  8. OXYCODONE HYDROCHLORIDE [Suspect]
     Active Substance: OXYCODONE HYDROCHLORIDE
     Route: 065
  9. MORPHINE SULFATE [Suspect]
     Active Substance: MORPHINE SULFATE
     Indication: Pain
     Route: 048
     Dates: start: 2013, end: 2014

REACTIONS (25)
  - Gastrointestinal disorder [Fatal]
  - Colon cancer [Fatal]
  - Pancreatic carcinoma [Fatal]
  - Gastric cancer [Fatal]
  - Drug dependence [Fatal]
  - Ulcer haemorrhage [Unknown]
  - Intestinal obstruction [Unknown]
  - Sepsis [Unknown]
  - Surgery [Unknown]
  - Decreased interest [Unknown]
  - Drooling [Unknown]
  - Lethargy [Unknown]
  - Libido decreased [Unknown]
  - Weight decreased [Unknown]
  - Agitation [Recovered/Resolved]
  - Behaviour disorder [Recovered/Resolved]
  - Gait disturbance [Unknown]
  - Aggression [Unknown]
  - Irritability [Unknown]
  - Abdominal discomfort [Unknown]
  - Diarrhoea [Unknown]
  - Constipation [Unknown]
  - Condition aggravated [Unknown]
  - Depression [Unknown]
  - Drug ineffective [Not Recovered/Not Resolved]

NARRATIVE: CASE EVENT DATE: 20140101
